FAERS Safety Report 8380238-1 (Version None)
Quarter: 2012Q2

REPORT INFORMATION
  Report Type: 
  Country: None (occurrence: None)
  Receive Date: 20120523
  Receipt Date: 20120516
  Transmission Date: 20120825
  Serious: Yes (Other)
  Sender: FDA-Public Use
  Company Number: PHEH2012US009271

PATIENT
  Sex: Female
  Weight: 56.236 kg

DRUGS (6)
  1. VAGIFEM [Concomitant]
     Dosage: UNK UKN, UNK
  2. IRON [Concomitant]
     Indication: ANAEMIA
     Dosage: UNK UKN, UNK
     Route: 042
     Dates: start: 20120306
  3. ESTRATEST [Concomitant]
     Dosage: UNK UKN, UNK
     Route: 048
  4. RECLAST [Suspect]
     Indication: OSTEOPOROSIS
     Dosage: 5 MG, YEARLY
     Route: 042
     Dates: start: 20120424
  5. IRON [Concomitant]
     Dosage: UNK UKN, UNK
     Route: 042
     Dates: start: 20120312
  6. NEXIUM [Concomitant]
     Indication: GASTROOESOPHAGEAL REFLUX DISEASE
     Dosage: 40 MG, QD
     Route: 048

REACTIONS (1)
  - TENOSYNOVITIS [None]
